FAERS Safety Report 6868962-0 (Version None)
Quarter: 2010Q3

REPORT INFORMATION
  Report Type: 
  Country: None (occurrence: None)
  Receive Date: 20100722
  Receipt Date: 20100722
  Transmission Date: 20110219
  Serious: No
  Sender: FDA-Public Use
  Company Number: None

PATIENT
  Sex: Male
  Weight: 97.3 kg

DRUGS (1)
  1. INTRON A [Suspect]
     Dosage: 630 MILLION IU

REACTIONS (1)
  - BLOOD TRIGLYCERIDES INCREASED [None]
